FAERS Safety Report 15582978 (Version 1)
Quarter: 2018Q4

REPORT INFORMATION
  Report Type: Spontaneous
  Country: US (occurrence: US)
  Receive Date: 20181103
  Receipt Date: 20181103
  Transmission Date: 20190205
  Serious: No
  Sender: FDA-Public Use
  Company Number: US-TEVA-2018-US-969238

PATIENT
  Age: 60 Year
  Sex: Female
  Weight: 79 kg

DRUGS (1)
  1. PROAIR HFA [Suspect]
     Active Substance: ALBUTEROL SULFATE
     Dosage: FORM STRENGTH: TWO PUFFS BY MOUTH EVERY 12 HOURS.
     Route: 065
     Dates: start: 20180921, end: 20181015

REACTIONS (6)
  - Rash [Unknown]
  - Sunburn [Unknown]
  - Pain [Unknown]
  - Lip erythema [Unknown]
  - Chapped lips [Unknown]
  - Lip swelling [Unknown]

NARRATIVE: CASE EVENT DATE: 201809
